FAERS Safety Report 5526481-8 (Version None)
Quarter: 2007Q4

REPORT INFORMATION
  Report Type: 
  Country: None (occurrence: None)
  Receive Date: 20071123
  Receipt Date: 20070607
  Transmission Date: 20080405
  Serious: Yes (Disabling, Other)
  Sender: FDA-Public Use
  Company Number: US-JNJFOC-20061203810

PATIENT
  Age: 75 Year
  Sex: Male
  Weight: 72.5755 kg

DRUGS (16)
  1. LEVAQUIN [Suspect]
     Indication: CHRONIC OBSTRUCTIVE PULMONARY DISEASE
     Dosage: 500 MG, IN 1 DAY, INTRAVENOUS
     Route: 042
     Dates: start: 20000922
  2. LEVAQUIN [Suspect]
     Indication: CHRONIC OBSTRUCTIVE PULMONARY DISEASE
     Dosage: ORAL
     Route: 048
     Dates: start: 20000901
  3. PREDNISONE [Suspect]
     Indication: BRONCHITIS
  4. SOLU-MEDROL [Concomitant]
  5. ALBUTEROL [Concomitant]
  6. ATROVEN (IPRATROPIUM BROMIDE) [Concomitant]
  7. ASPIRIN [Concomitant]
  8. COZAAR [Concomitant]
  9. METHYLDOPA [Concomitant]
  10. LIPITOR [Concomitant]
  11. PROVENTIL (SALBUTAMOL) [Concomitant]
  12. SEREVENT [Concomitant]
  13. THEOPHYLLINE [Concomitant]
  14. VANCERIL (BECLOMETASONE DIPROPIONATE) [Concomitant]
  15. ZANTAC 150 [Concomitant]
  16. CLARITHROMYCIN [Concomitant]

REACTIONS (3)
  - PLANTAR FASCIITIS [None]
  - TENDON RUPTURE [None]
  - TENDONITIS [None]
